FAERS Safety Report 12313015 (Version 5)
Quarter: 2017Q2

REPORT INFORMATION
  Report Type: Report from Study
  Country: CA (occurrence: CA)
  Receive Date: 20160428
  Receipt Date: 20170419
  Transmission Date: 20170830
  Serious: Yes (Death, Disabling)
  Sender: FDA-Public Use
  Company Number: CA-ROCHE-1746761

PATIENT
  Age: 78 Year
  Sex: Male
  Weight: 100.8 kg

DRUGS (21)
  1. BENDAMUSTINE [Suspect]
     Active Substance: BENDAMUSTINE
     Indication: B-CELL LYMPHOMA
     Dosage: DATE OF MOST RECENT DOSE: 30/APR/2014, DOSE OF MOST RECENT DOSE 196.25 MG
     Route: 042
     Dates: start: 20131211
  2. CALAMINE LOTION [Concomitant]
     Active Substance: CALAMINE LOTION
     Indication: PRURITUS
     Route: 065
     Dates: start: 201403, end: 201408
  3. ACETYLSALICYLIC ACID [Concomitant]
     Active Substance: ASPIRIN
     Route: 065
     Dates: end: 201408
  4. AVEENO BATH [Concomitant]
     Indication: PRURITUS
     Route: 065
     Dates: start: 201403, end: 201408
  5. ASPIRIN. [Concomitant]
     Active Substance: ASPIRIN
     Dosage: LOW DOSE
     Route: 065
     Dates: start: 20150327
  6. RITUXIMAB [Suspect]
     Active Substance: RITUXIMAB
     Indication: B-CELL LYMPHOMA
     Dosage: DATE OF MOST RECENT DOSE OF RITUXIMAB PRIOR TO EVENT ONSET  (1.63 MG/ML (500 ML) WAS ON 18/JAN/2016
     Route: 042
     Dates: start: 20131210
  7. BISOPROLOL [Concomitant]
     Active Substance: BISOPROLOL
     Route: 065
  8. ZOVIRAX CREME [Concomitant]
     Indication: HERPES ZOSTER
     Route: 065
     Dates: start: 20140314, end: 201404
  9. ALLOPURINOL. [Concomitant]
     Active Substance: ALLOPURINOL
     Indication: GOUT
     Route: 065
  10. ACYCLOVIR. [Concomitant]
     Active Substance: ACYCLOVIR
     Indication: SKIN INFECTION
  11. ZOSTRIX ORIGINAL STRENGTH [Concomitant]
     Active Substance: CAPSAICIN
     Indication: PRURITUS
     Route: 061
     Dates: start: 20141202
  12. TYLENOL [Concomitant]
     Active Substance: ACETAMINOPHEN
     Indication: RESTLESSNESS
     Route: 065
     Dates: start: 20151002
  13. ACYCLOVIR. [Concomitant]
     Active Substance: ACYCLOVIR
     Indication: HERPES ZOSTER
     Route: 048
     Dates: start: 20140401, end: 20160630
  14. GOLD BOND MEDICATED BODY POWDER [Concomitant]
     Indication: PRURITUS
     Route: 065
     Dates: start: 2014
  15. BUCKLEY^S SINUS AND MUCOUS (UNK INGREDIENTS) [Concomitant]
     Indication: SINUS CONGESTION
     Route: 065
     Dates: start: 201409
  16. ELAVIL [Concomitant]
     Active Substance: AMITRIPTYLINE HYDROCHLORIDE
     Indication: HERPES ZOSTER
     Route: 065
     Dates: start: 20150202
  17. LIPITOR [Concomitant]
     Active Substance: ATORVASTATIN CALCIUM
     Indication: BLOOD CHOLESTEROL INCREASED
     Route: 065
  18. NORVASC [Concomitant]
     Active Substance: AMLODIPINE BESYLATE
     Indication: HYPERTENSION
     Route: 065
  19. HYDROCHLOROTHIAZIDE/VALSARTAN [Concomitant]
     Active Substance: HYDROCHLOROTHIAZIDE\VALSARTAN
     Indication: HYPERTENSION
  20. ZOVIRAX CREME [Concomitant]
     Indication: SKIN INFECTION
  21. ZOVIRAX CREME [Concomitant]
     Indication: PRURITUS

REACTIONS (2)
  - Brachial plexopathy [Recovered/Resolved]
  - Amyotrophic lateral sclerosis [Fatal]

NARRATIVE: CASE EVENT DATE: 20160129
